FAERS Safety Report 9333908 (Version 2)
Quarter: 2013Q3

REPORT INFORMATION
  Report Type: Spontaneous
  Country: CO (occurrence: None)
  Receive Date: 20130604
  Receipt Date: 20130821
  Transmission Date: 20140515
  Serious: Yes (Hospitalization)
  Sender: FDA-Public Use
  Company Number: DSU-2013-03474

PATIENT
  Age: 70 Year
  Sex: Female

DRUGS (3)
  1. OLMETEC [Suspect]
     Indication: HYPERTENSION
     Dosage: 40/12.5 MG?
     Route: 048
     Dates: end: 20130501
  2. INSULIN [Suspect]
     Dosage: 12IU OR 16IU (QHS)
     Route: 058
  3. LANTUS *INSULIN GLARGINE) (INSULN GLARGINE) [Concomitant]

REACTIONS (2)
  - Renal disorder [None]
  - Sepsis [None]
